FAERS Safety Report 5348112-2 (Version None)
Quarter: 2007Q2

REPORT INFORMATION
  Report Type: 
  Country: None (occurrence: None)
  Receive Date: 20070606
  Receipt Date: 20070529
  Transmission Date: 20071010
  Serious: Yes (Other)
  Sender: FDA-Public Use
  Company Number: US-ABBOTT-07P-163-0369759-00

PATIENT
  Age: 65 Year
  Sex: Male

DRUGS (2)
  1. TERAZOSIN HCL [Suspect]
     Indication: BENIGN PROSTATIC HYPERPLASIA
     Dosage: NOT REPORTED
  2. TAMSULOSIN HCL [Suspect]
     Indication: BENIGN PROSTATIC HYPERPLASIA
     Dosage: NOT REPORTED

REACTIONS (1)
  - CHOROIDAL DETACHMENT [None]
